FAERS Safety Report 25461274 (Version 1)
Quarter: 2025Q2

REPORT INFORMATION
  Report Type: Spontaneous
  Country: US (occurrence: US)
  Receive Date: 20250620
  Receipt Date: 20250620
  Transmission Date: 20250717
  Serious: No
  Sender: SANOFI AVENTIS
  Company Number: US-SA-2025SA174476

PATIENT
  Age: 79 Year
  Sex: Male

DRUGS (2)
  1. DUPIXENT [Suspect]
     Active Substance: DUPILUMAB
     Indication: Dermatitis atopic
     Dosage: 300 MG, QOW
     Route: 058
     Dates: start: 202201, end: 20250425
  2. DUPIXENT [Suspect]
     Active Substance: DUPILUMAB
     Dates: start: 2025

REACTIONS (2)
  - Dermatitis allergic [Unknown]
  - Rebound effect [Unknown]

NARRATIVE: CASE EVENT DATE: 20250501
